FAERS Safety Report 5072492-9 (Version None)
Quarter: 2006Q3

REPORT INFORMATION
  Report Type: 
  Country: None (occurrence: None)
  Receive Date: 20060807
  Receipt Date: 20060715
  Transmission Date: 20061208
  Serious: Yes (Hospitalization)
  Sender: FDA-Public Use
  Company Number: 2006AP03556

PATIENT
  Age: 79 Year
  Sex: Female
  Weight: 44 kg

DRUGS (4)
  1. ARIMIDEX [Suspect]
     Indication: BREAST CANCER
     Route: 048
     Dates: start: 20031201, end: 20060605
  2. MOBIC [Suspect]
     Route: 048
     Dates: end: 20060605
  3. ACINON [Concomitant]
     Route: 048
     Dates: end: 20060605
  4. MESTINON [Concomitant]
     Indication: MYASTHENIA GRAVIS
     Route: 048
     Dates: end: 20060605

REACTIONS (5)
  - DRUG INEFFECTIVE [None]
  - HAEMODIALYSIS [None]
  - NEPHRITIS INTERSTITIAL [None]
  - NEPHROTIC SYNDROME [None]
  - RENAL FAILURE ACUTE [None]
